FAERS Safety Report 6108522-2 (Version None)
Quarter: 2009Q1

REPORT INFORMATION
  Report Type: 
  Country: None (occurrence: None)
  Receive Date: 20090309
  Receipt Date: 20090226
  Transmission Date: 20090719
  Serious: Yes (Other)
  Sender: FDA-Public Use
  Company Number: US-JNJCH-2009005533

PATIENT

DRUGS (1)
  1. BENADRYL [Suspect]
     Indication: SLEEP DISORDER
     Dosage: TEXT:8-12 TABLETS
     Route: 048

REACTIONS (3)
  - DEPENDENCE [None]
  - INCORRECT DOSE ADMINISTERED [None]
  - OFF LABEL USE [None]
